FAERS Safety Report 18699199 (Version 4)
Quarter: 2022Q4

REPORT INFORMATION
  Report Type: Spontaneous
  Country: US (occurrence: US)
  Receive Date: 20210104
  Receipt Date: 20221109
  Transmission Date: 20230113
  Serious: Yes (Other)
  Sender: FDA-Public Use
  Company Number: US-PFIZER INC-2020170381

PATIENT
  Age: 72 Year
  Sex: Female
  Weight: 56.25 kg

DRUGS (3)
  1. XELJANZ [Suspect]
     Active Substance: TOFACITINIB CITRATE
     Indication: Rheumatoid arthritis
     Dosage: 5 MG, 2X/DAY
     Route: 048
  2. XELJANZ [Suspect]
     Active Substance: TOFACITINIB CITRATE
     Dosage: 5 UNK
     Route: 048
  3. METHOTREXATE [Concomitant]
     Active Substance: METHOTREXATE
     Indication: Rheumatoid arthritis
     Dosage: 10 MG, WEEKLY
     Route: 048

REACTIONS (9)
  - Diverticulitis [Recovered/Resolved]
  - Cystitis [Recovered/Resolved]
  - Drug ineffective [Unknown]
  - Memory impairment [Unknown]
  - Illness [Unknown]
  - Tremor [Unknown]
  - Stress [Unknown]
  - Visual impairment [Unknown]
  - Aphonia [Unknown]

NARRATIVE: CASE EVENT DATE: 20220101
